FAERS Safety Report 26141099 (Version 1)
Quarter: 2025Q4

REPORT INFORMATION
  Report Type: Spontaneous
  Country: EU (occurrence: EU)
  Receive Date: 20251210
  Receipt Date: 20251210
  Transmission Date: 20260117
  Serious: Yes (Hospitalization, Other)
  Sender: SANDOZ
  Company Number: EU-OTSUKA-2023_013306

PATIENT
  Age: 16 Year
  Sex: Female

DRUGS (13)
  1. FLUOXETINE [Suspect]
     Active Substance: FLUOXETINE HYDROCHLORIDE
     Indication: Sleep disorder
     Dosage: 20 MG, QD
     Route: 065
  2. FLUOXETINE [Suspect]
     Active Substance: FLUOXETINE HYDROCHLORIDE
     Indication: Autism spectrum disorder
     Dosage: 40 MG, QD
     Route: 065
  3. FLUOXETINE [Suspect]
     Active Substance: FLUOXETINE HYDROCHLORIDE
     Indication: Major depression
  4. ARIPIPRAZOLE [Interacting]
     Active Substance: ARIPIPRAZOLE
     Indication: Autism spectrum disorder
     Dosage: 15 MG, DAILY
     Route: 065
  5. ARIPIPRAZOLE [Interacting]
     Active Substance: ARIPIPRAZOLE
     Indication: Major depression
  6. DULOXETINE [Interacting]
     Active Substance: DULOXETINE
     Indication: Sleep disorder
     Dosage: 120 MG, DAILY
     Route: 065
  7. DULOXETINE [Interacting]
     Active Substance: DULOXETINE
     Indication: Autism spectrum disorder
     Dosage: 60 MG, QD
     Route: 065
  8. DULOXETINE [Interacting]
     Active Substance: DULOXETINE
     Indication: Major depression
  9. LITHIUM [Interacting]
     Active Substance: LITHIUM
     Indication: Autism spectrum disorder
     Dosage: 12 MMOL DAILY
     Route: 065
  10. LITHIUM [Interacting]
     Active Substance: LITHIUM
     Indication: Major depression
  11. MIRTAZAPINE [Interacting]
     Active Substance: MIRTAZAPINE
     Indication: Sleep disorder
     Dosage: 15 MG, QD
     Route: 065
  12. MIRTAZAPINE [Interacting]
     Active Substance: MIRTAZAPINE
     Indication: Autism spectrum disorder
     Dosage: 30 MG, DAILY
     Route: 065
  13. MIRTAZAPINE [Interacting]
     Active Substance: MIRTAZAPINE
     Indication: Major depression

REACTIONS (8)
  - Vision blurred [Unknown]
  - Electrocardiogram repolarisation abnormality [Unknown]
  - Depression [Unknown]
  - Drug interaction [Unknown]
  - Drug ineffective for unapproved indication [Unknown]
  - Therapeutic product effect incomplete [Unknown]
  - Product use issue [Unknown]
  - Drug ineffective [Unknown]
